FAERS Safety Report 26194793 (Version 1)
Quarter: 2025Q4

REPORT INFORMATION
  Report Type: Spontaneous
  Country: US (occurrence: US)
  Receive Date: 20251224
  Receipt Date: 20251224
  Transmission Date: 20260119
  Serious: No
  Sender: LEO PHARM
  Company Number: US-LEO Pharma-385090

PATIENT
  Age: 29 Year
  Sex: Male

DRUGS (1)
  1. ADBRY [Suspect]
     Active Substance: TRALOKINUMAB-LDRM
     Indication: Eczema
     Dosage: TREATMENT ONGOING
     Route: 058
     Dates: start: 20251002

REACTIONS (1)
  - Skin fissures [Unknown]
